FAERS Safety Report 7353239-X (Version None)
Quarter: 2011Q1

REPORT INFORMATION
  Report Type: 
  Country: None (occurrence: None)
  Receive Date: 20110310
  Receipt Date: 20110310
  Transmission Date: 20110831
  Serious: Yes (Disabling)
  Sender: FDA-Public Use
  Company Number: None

PATIENT
  Age: 74 Year
  Sex: Male

DRUGS (11)
  1. DILTIAZEM HCL [Concomitant]
  2. LEVOTHYROXINE SODIUM [Suspect]
  3. ALLOPURINOL [Concomitant]
  4. METFORMIN HCL [Suspect]
  5. GLIPIZIDE [Suspect]
  6. HYDROCODONE BITARTRATE + ACETAMINOPHEN [Suspect]
  7. WARFARIN SODIUM [Suspect]
     Indication: PULMONARY EMBOLISM
     Dosage: 30 MG PER WEEK PO
     Route: 048
  8. WARFARIN SODIUM [Suspect]
     Indication: ATRIAL FIBRILLATION
     Dosage: 30 MG PER WEEK PO
     Route: 048
  9. WARFARIN SODIUM [Suspect]
     Indication: DEEP VEIN THROMBOSIS
     Dosage: 30 MG PER WEEK PO
     Route: 048
  10. LISINOPRIL [Suspect]
  11. FUROSEMIDE [Suspect]

REACTIONS (10)
  - FALL [None]
  - DIABETES MELLITUS INADEQUATE CONTROL [None]
  - INTERNATIONAL NORMALISED RATIO INCREASED [None]
  - ASTHENIA [None]
  - COAGULATION TIME PROLONGED [None]
  - URINARY TRACT INFECTION [None]
  - URINARY INCONTINENCE [None]
  - SUBDURAL HAEMATOMA [None]
  - CONFUSIONAL STATE [None]
  - SYNCOPE [None]
